FAERS Safety Report 23524503 (Version 1)
Quarter: 2024Q1

REPORT INFORMATION
  Report Type: Spontaneous
  Country: US (occurrence: US)
  Receive Date: 20240214
  Receipt Date: 20240214
  Transmission Date: 20240410
  Serious: Yes (Other)
  Sender: FDA-Public Use
  Company Number: US-ABBVIE-5629499

PATIENT
  Sex: Male

DRUGS (2)
  1. IMBRUVICA [Suspect]
     Active Substance: IBRUTINIB
     Indication: Product used for unknown indication
     Route: 048
  2. IMBRUVICA [Suspect]
     Active Substance: IBRUTINIB
     Indication: Product used for unknown indication
     Route: 048

REACTIONS (7)
  - Micrographic skin surgery [Unknown]
  - Platelet count decreased [Unknown]
  - Wound haemorrhage [Unknown]
  - Wound secretion [Unknown]
  - Contusion [Unknown]
  - Wound complication [Unknown]
  - Wound [Unknown]
